FAERS Safety Report 8588292-9 (Version None)
Quarter: 2012Q3

REPORT INFORMATION
  Report Type: 
  Country: None (occurrence: None)
  Receive Date: 20120813
  Receipt Date: 20120803
  Transmission Date: 20120928
  Serious: Yes (Other)
  Sender: FDA-Public Use
  Company Number: US-SHIRE-ALL1-2012-03723

PATIENT
  Sex: Male

DRUGS (1)
  1. VPRIV [Suspect]
     Indication: GAUCHER'S DISEASE
     Dosage: 2800 IU, 1X/2WKS
     Route: 041
     Dates: start: 20100721

REACTIONS (1)
  - NEUROPATHY PERIPHERAL [None]
